FAERS Safety Report 8242466-5 (Version None)
Quarter: 2012Q1

REPORT INFORMATION
  Report Type: 
  Country: None (occurrence: None)
  Receive Date: 20120314
  Receipt Date: 20100803
  Transmission Date: 20120608
  Serious: Yes (Other)
  Sender: FDA-Public Use
  Company Number: PHHY2010US92291

PATIENT
  Age: 27 Year
  Sex: Male
  Weight: 103 kg

DRUGS (4)
  1. CITALOPRAM HYDROBROMIDE [Concomitant]
  2. BENZTROPINE MESYLATE [Concomitant]
  3. LAMOTRIGINE [Concomitant]
  4. FANAPT [Suspect]
     Indication: SCHIZOAFFECTIVE DISORDER
     Dosage: 12 MG, BID 10 MG, BID
     Dates: start: 20100527

REACTIONS (4)
  - DRUG INEFFECTIVE [None]
  - ORTHOSTATIC HYPOTENSION [None]
  - FALL [None]
  - HEAD INJURY [None]
